FAERS Safety Report 21183579 (Version 2)
Quarter: 2022Q3

REPORT INFORMATION
  Report Type: Spontaneous
  Country: DE (occurrence: DE)
  Receive Date: 20220808
  Receipt Date: 20220919
  Transmission Date: 20221027
  Serious: Yes (Other)
  Sender: FDA-Public Use
  Company Number: DE-ALKEM LABORATORIES LIMITED-DE-ALKEM-2022-07980

PATIENT
  Sex: Male

DRUGS (44)
  1. ASPIRIN [Suspect]
     Active Substance: ASPIRIN
     Indication: Product used for unknown indication
     Dosage: UNK
     Route: 065
  2. CLOPIDOGREL [Suspect]
     Active Substance: CLOPIDOGREL BISULFATE
     Indication: Product used for unknown indication
     Dosage: UNK
     Route: 065
  3. IBUPROFEN [Suspect]
     Active Substance: IBUPROFEN
     Indication: Product used for unknown indication
     Dosage: UNK
     Route: 065
  4. ROSUVASTATIN [Suspect]
     Active Substance: ROSUVASTATIN
     Indication: Product used for unknown indication
     Dosage: UNK, FILM-COATED TABLET
     Route: 065
  5. TADALAFIL [Suspect]
     Active Substance: TADALAFIL
     Indication: Product used for unknown indication
     Dosage: UNK(FILM-COATED TABLET)
     Route: 065
  6. TAMSULOSIN HYDROCHLORIDE [Suspect]
     Active Substance: TAMSULOSIN HYDROCHLORIDE
     Indication: Product used for unknown indication
     Dosage: UNK
     Route: 065
  7. ASPIRIN CALCIUM [Suspect]
     Active Substance: ASPIRIN CALCIUM
     Indication: Product used for unknown indication
     Dosage: UNK
     Route: 065
  8. ATROVENT [Suspect]
     Active Substance: IPRATROPIUM BROMIDE
     Indication: Dysphonia
     Dosage: UNK
     Route: 065
  9. ATROVENT [Suspect]
     Active Substance: IPRATROPIUM BROMIDE
     Indication: Nasopharyngitis
  10. ATROVENT [Suspect]
     Active Substance: IPRATROPIUM BROMIDE
     Indication: Dyspnoea
  11. ATROVENT [Suspect]
     Active Substance: IPRATROPIUM BROMIDE
     Indication: Cough
  12. ATROVENT [Suspect]
     Active Substance: IPRATROPIUM BROMIDE
     Indication: Secretion discharge
  13. ATROVENT [Suspect]
     Active Substance: IPRATROPIUM BROMIDE
     Indication: Pneumothorax
  14. BIOTIN [Suspect]
     Active Substance: BIOTIN
     Indication: Product used for unknown indication
     Dosage: UNK, QD (EVERY ONE DAY)
     Route: 065
  15. CALCIUM CARBONATE [Suspect]
     Active Substance: CALCIUM CARBONATE
     Indication: Product used for unknown indication
     Dosage: UNK, QD
     Route: 065
  16. CALCIUM CARBONATE [Suspect]
     Active Substance: CALCIUM CARBONATE
     Dosage: UNK, EVERY 0.5 DAY
     Route: 065
  17. COLESEVELAM HYDROCHLORIDE [Suspect]
     Active Substance: COLESEVELAM HYDROCHLORIDE
     Indication: Product used for unknown indication
     Dosage: UNK
     Route: 065
  18. DICLOFENAC DIETHYLAMINE [Suspect]
     Active Substance: DICLOFENAC DIETHYLAMINE
     Indication: Product used for unknown indication
     Dosage: UNK
     Route: 065
  19. ERGOCALCIFEROL [Suspect]
     Active Substance: ERGOCALCIFEROL
     Indication: Product used for unknown indication
     Dosage: UNK, ONCE WEEKLY
     Route: 065
  20. MAGNESIUM OROTATE [Suspect]
     Active Substance: MAGNESIUM OROTATE
     Indication: Product used for unknown indication
     Dosage: UNK (UNCOATED)
     Route: 048
  21. MOMETASONE FUROATE [Suspect]
     Active Substance: MOMETASONE FUROATE
     Indication: Product used for unknown indication
     Dosage: UNK
     Route: 065
  22. MOMETASONE FUROATE [Suspect]
     Active Substance: MOMETASONE FUROATE
     Indication: Product used for unknown indication
     Dosage: 2 DOSAGE FORM
     Route: 065
  23. AMBROXOL HYDROCHLORIDE [Suspect]
     Active Substance: AMBROXOL HYDROCHLORIDE
     Indication: Product used for unknown indication
     Dosage: UNK
     Route: 065
  24. SOAP [Suspect]
     Active Substance: SOAP
     Indication: Product used for unknown indication
     Dosage: UNK
     Route: 065
  25. PRALUENT [Suspect]
     Active Substance: ALIROCUMAB
     Indication: Product used for unknown indication
     Dosage: UNK
     Route: 065
  26. DIETARY SUPPLEMENT [Suspect]
     Active Substance: DIETARY SUPPLEMENT
     Indication: Product used for unknown indication
     Dosage: UNK
     Route: 065
  27. HERBALS [Suspect]
     Active Substance: HERBALS
     Indication: Product used for unknown indication
     Dosage: UNK
     Route: 065
  28. REPATHA [Suspect]
     Active Substance: EVOLOCUMAB
     Indication: Product used for unknown indication
     Dosage: UNK UNK, ONCE WEEKLY( EVERY 56 HOUR)
     Route: 065
  29. ALBUTEROL SULFATE [Suspect]
     Active Substance: ALBUTEROL SULFATE
     Indication: Secretion discharge
     Dosage: UNK
     Route: 065
  30. ALBUTEROL SULFATE [Suspect]
     Active Substance: ALBUTEROL SULFATE
     Indication: Dysphonia
  31. ALBUTEROL SULFATE [Suspect]
     Active Substance: ALBUTEROL SULFATE
     Indication: Nasopharyngitis
  32. ALBUTEROL SULFATE [Suspect]
     Active Substance: ALBUTEROL SULFATE
     Indication: Pneumothorax
  33. ALBUTEROL SULFATE [Suspect]
     Active Substance: ALBUTEROL SULFATE
     Indication: Dysphonia
  34. HERBALS\PHENYL SALICYLATE [Suspect]
     Active Substance: HERBALS\PHENYL SALICYLATE
     Indication: Asthma
     Dosage: 10 DROP, QD
     Route: 065
  35. HERBALS\PHENYL SALICYLATE [Suspect]
     Active Substance: HERBALS\PHENYL SALICYLATE
     Indication: Bronchitis
  36. TOCOPHEROL [Suspect]
     Active Substance: TOCOPHEROL
     Indication: Product used for unknown indication
     Dosage: UNK, ONCE WEEKLY (EVERY ONE WEEK)
     Route: 065
  37. MAGNESIUM ASPARTATE\POTASSIUM ASPARTATE [Suspect]
     Active Substance: MAGNESIUM ASPARTATE\POTASSIUM ASPARTATE
     Indication: Product used for unknown indication
     Dosage: UNK
     Route: 065
  38. FLUTICASONE PROPIONATE\SALMETEROL XINAFOATE [Suspect]
     Active Substance: FLUTICASONE PROPIONATE\SALMETEROL XINAFOATE
     Indication: Nasopharyngitis
     Dosage: UNK
     Route: 065
  39. FLUTICASONE PROPIONATE\SALMETEROL XINAFOATE [Suspect]
     Active Substance: FLUTICASONE PROPIONATE\SALMETEROL XINAFOATE
     Indication: Secretion discharge
  40. FLUTICASONE PROPIONATE\SALMETEROL XINAFOATE [Suspect]
     Active Substance: FLUTICASONE PROPIONATE\SALMETEROL XINAFOATE
     Indication: Pneumothorax
  41. FLUTICASONE PROPIONATE\SALMETEROL XINAFOATE [Suspect]
     Active Substance: FLUTICASONE PROPIONATE\SALMETEROL XINAFOATE
     Indication: Dysphonia
  42. ACETIC ACID\DELTAMETHRIN [Suspect]
     Active Substance: ACETIC ACID\DELTAMETHRIN
     Indication: Product used for unknown indication
     Dosage: UNK
     Route: 065
  43. XARELTO [Suspect]
     Active Substance: RIVAROXABAN
     Indication: Product used for unknown indication
     Dosage: UNK
     Route: 065
  44. PREDNISOLONE [Concomitant]
     Active Substance: PREDNISOLONE
     Indication: Product used for unknown indication
     Dosage: UNK
     Route: 065

REACTIONS (22)
  - Sensation of foreign body [Unknown]
  - Chest discomfort [Unknown]
  - Obstructive sleep apnoea syndrome [Unknown]
  - Atrial fibrillation [Recovered/Resolved]
  - Exostosis [Unknown]
  - Dyspnoea exertional [Unknown]
  - Nasopharyngitis [Unknown]
  - Coronary artery disease [Unknown]
  - Dyspnoea [Unknown]
  - Plantar fasciitis [Unknown]
  - Pneumothorax [Unknown]
  - Eosinophilia [Unknown]
  - Wheezing [Unknown]
  - Cardiac disorder [Unknown]
  - Cough [Not Recovered/Not Resolved]
  - Obstructive airways disorder [Unknown]
  - Myoglobin blood increased [Unknown]
  - Fractional exhaled nitric oxide increased [Unknown]
  - Brain natriuretic peptide increased [Unknown]
  - Secretion discharge [Unknown]
  - Muscle spasms [Unknown]
  - Dysphonia [Unknown]

NARRATIVE: CASE EVENT DATE: 20180101
